FAERS Safety Report 4717439-7 (Version None)
Quarter: 2005Q3

REPORT INFORMATION
  Report Type: 
  Country: None (occurrence: None)
  Receive Date: 20050715
  Receipt Date: 20050705
  Transmission Date: 20060218
  Serious: Yes (Hospitalization, Other)
  Sender: FDA-Public Use
  Company Number: 2005097937

PATIENT
  Age: 61 Year
  Sex: Male
  Weight: 73.4827 kg

DRUGS (4)
  1. VIAGRA [Suspect]
     Indication: ILL-DEFINED DISORDER
     Dosage: (50 MG), ORAL
     Route: 048
     Dates: start: 20030101
  2. COUMADIN [Concomitant]
  3. FLURAZEPAM [Concomitant]
  4. METOPROLOL TARTRATE [Concomitant]

REACTIONS (13)
  - BLADDER NECK OBSTRUCTION [None]
  - CATHETER RELATED COMPLICATION [None]
  - DRUG INEFFECTIVE [None]
  - HYPOTENSION [None]
  - IATROGENIC INJURY [None]
  - NEPHROLITHIASIS [None]
  - POOR QUALITY DRUG ADMINISTERED [None]
  - POST PROCEDURAL HAEMORRHAGE [None]
  - PROCEDURAL COMPLICATION [None]
  - PROSTATE CANCER [None]
  - SURGICAL PROCEDURE REPEATED [None]
  - URETHRAL INJURY [None]
  - URINARY RETENTION [None]
